FAERS Safety Report 8990978 (Version 1)
Quarter: 2012Q4

REPORT INFORMATION
  Report Type: Spontaneous
  Country: US (occurrence: None)
  Receive Date: 20121227
  Receipt Date: 20121227
  Transmission Date: 20130627
  Serious: Yes (Disabling)
  Sender: FDA-Public Use
  Company Number: None

PATIENT
  Age: 50 Year
  Sex: Female
  Weight: 57.15 kg

DRUGS (1)
  1. IBANDRONATE SODIUM TABLETS [Suspect]
     Indication: OSTEOPENIA
     Dosage: 150mg  Once Monthly  po
     Route: 048
     Dates: start: 20121117, end: 20121217

REACTIONS (8)
  - Bone pain [None]
  - Menopause [None]
  - Pain in extremity [None]
  - Arthralgia [None]
  - Spinal disorder [None]
  - Condition aggravated [None]
  - Joint swelling [None]
  - Feeling cold [None]
